FAERS Safety Report 6443238-4 (Version None)
Quarter: 2009Q4

REPORT INFORMATION
  Report Type: 
  Country: None (occurrence: None)
  Receive Date: 20091113
  Receipt Date: 20091104
  Transmission Date: 20100525
  Serious: Yes (Other)
  Sender: FDA-Public Use
  Company Number: 2009SP034602

PATIENT
  Age: 19 Year
  Sex: Female

DRUGS (2)
  1. NUVARING [Suspect]
     Indication: DRUG USE FOR UNKNOWN INDICATION
     Dosage: ; VAG
     Route: 067
     Dates: start: 20091001
  2. LEVOTHYROXINE [Suspect]
     Indication: HYPOTHYROIDISM
     Dates: start: 20091001

REACTIONS (4)
  - CHEST PAIN [None]
  - DIZZINESS [None]
  - FATIGUE [None]
  - SYNCOPE [None]
